FAERS Safety Report 24916202 (Version 1)
Quarter: 2025Q1

REPORT INFORMATION
  Report Type: Spontaneous
  Country: ES (occurrence: ES)
  Receive Date: 20250203
  Receipt Date: 20250203
  Transmission Date: 20250409
  Serious: Yes (Other)
  Sender: TEVA
  Company Number: None

PATIENT
  Age: 81 Year
  Sex: Male
  Weight: 85 kg

DRUGS (5)
  1. ESCITALOPRAM [Suspect]
     Active Substance: ESCITALOPRAM OXALATE
     Indication: Product used for unknown indication
     Dosage: ESCITALOPRAM TEVA FILM-COATED TABLETS EFG, 28 TABLETS
     Route: 048
     Dates: start: 20201223
  2. LEVOFLOXACIN [Suspect]
     Active Substance: LEVOFLOXACIN
     Indication: Influenza
     Dosage: FILM-COATED TABLETS EFG, 7 TABLETS
     Route: 048
     Dates: start: 20250109
  3. MEPIFYLLINE [Suspect]
     Active Substance: MEPIFYLLINE
     Indication: Influenza
     Dosage: 1 BOTTLE OF 250 ML
     Route: 048
     Dates: start: 20250108, end: 20250110
  4. ACETAMINOPHEN\ASCORBIC ACID\CODEINE [Suspect]
     Active Substance: ACETAMINOPHEN\ASCORBIC ACID\CODEINE
     Indication: Influenza
     Dosage: 650 MG/ 10 MG/ 500 MG, 20 SACHETS
     Route: 048
     Dates: start: 20250108
  5. FOSTER [Suspect]
     Active Substance: BECLOMETHASONE\FORMOTEROL
     Indication: Influenza
     Dosage: 100 MICROGRAMS/6 MICROGRAMS/ASPRAY SOLUTION FOR INHALATION IN PRESSURE CONTAINER, 1 INHALER OF 12...
     Route: 065
     Dates: start: 20250108

REACTIONS (1)
  - Depressed level of consciousness [Recovered/Resolved]

NARRATIVE: CASE EVENT DATE: 20250110
